FAERS Safety Report 9500589 (Version 1)
Quarter: 2013Q1

REPORT INFORMATION
  Report Type: Spontaneous
  Country: US (occurrence: None)
  Receive Date: 20130107
  Receipt Date: 20130107
  Transmission Date: 20140127
  Serious: No
  Sender: FDA-Public Use
  Company Number: PHEH2012US023193

PATIENT
  Age: 32 Year
  Sex: Female
  Weight: 81.6 kg

DRUGS (5)
  1. GILENYA [Suspect]
     Route: 048
  2. TIZANIDINE (TIZANIDINE) TABLET [Concomitant]
  3. PREVACID (LANSOPRAZOLE) [Concomitant]
  4. DICLOFENAC (DICLOFENAC) TABLET [Concomitant]
  5. AMANTADINE (AMANTADINE) TABLET [Concomitant]

REACTIONS (5)
  - Hypoaesthesia [None]
  - Insomnia [None]
  - Visual impairment [None]
  - Vision blurred [None]
  - Dyspnoea [None]
